FAERS Safety Report 17789294 (Version 2)
Quarter: 2020Q2

REPORT INFORMATION
  Report Type: Spontaneous
  Country: GB (occurrence: GB)
  Receive Date: 20200515
  Receipt Date: 20200520
  Transmission Date: 20200714
  Serious: Yes (Disabling, Other)
  Sender: FDA-Public Use
  Company Number: GB-009507513-2005GBR003540

PATIENT
  Age: 28 Year
  Sex: Female
  Weight: 53.52 kg

DRUGS (3)
  1. MOMETASONE FUROATE. [Suspect]
     Active Substance: MOMETASONE FUROATE
     Indication: DERMATITIS CONTACT
     Dosage: BECAME MORE REGULAR OVER TIME. IN 2019, APPLICATION APPROXIMATELY ONCE A FORTNIGHT.
     Route: 061
     Dates: start: 20160801, end: 20200106
  2. FLOXACILLIN [Concomitant]
     Active Substance: FLUCLOXACILLIN
     Dosage: UNK
  3. LORATADINE. [Concomitant]
     Active Substance: LORATADINE
     Dosage: UNK

REACTIONS (9)
  - Erythema [Recovering/Resolving]
  - Eczema [Recovering/Resolving]
  - Skin weeping [Recovering/Resolving]
  - Pruritus [Recovering/Resolving]
  - Skin odour abnormal [Unknown]
  - Skin atrophy [Unknown]
  - Skin exfoliation [Recovering/Resolving]
  - Steroid withdrawal syndrome [Unknown]
  - Skin burning sensation [Unknown]

NARRATIVE: CASE EVENT DATE: 20200124
